FAERS Safety Report 7393737-6 (Version None)
Quarter: 2011Q2

REPORT INFORMATION
  Report Type: 
  Country: None (occurrence: None)
  Receive Date: 20110405
  Receipt Date: 20110322
  Transmission Date: 20111010
  Serious: Yes (Other)
  Sender: FDA-Public Use
  Company Number: FR-JNJFOC-20091004092

PATIENT
  Age: 28 Year
  Sex: Female
  Weight: 60 kg

DRUGS (7)
  1. REMICADE [Suspect]
     Route: 042
     Dates: start: 20090605, end: 20090911
  2. REMICADE [Suspect]
     Route: 042
     Dates: start: 20090605, end: 20090911
  3. ROVAMYCINE [Concomitant]
  4. PARACETAMOL [Concomitant]
  5. REMICADE [Suspect]
     Route: 042
     Dates: start: 20090605, end: 20090911
  6. REMICADE [Suspect]
     Indication: CROHN'S DISEASE
     Route: 042
     Dates: start: 20090605, end: 20090911
  7. REMICADE [Suspect]
     Route: 042
     Dates: start: 20090605, end: 20090911

REACTIONS (2)
  - PREMATURE LABOUR [None]
  - DRUG EXPOSURE DURING PREGNANCY [None]
